FAERS Safety Report 8177958-0 (Version None)
Quarter: 2012Q1

REPORT INFORMATION
  Report Type: 
  Country: None (occurrence: None)
  Receive Date: 20120301
  Receipt Date: 20120223
  Transmission Date: 20120608
  Serious: Yes (Hospitalization, Other)
  Sender: FDA-Public Use
  Company Number: US-BAYER-2011-003036

PATIENT
  Age: 26 Year
  Sex: Female
  Weight: 52 kg

DRUGS (14)
  1. COMBIVENT [Concomitant]
     Dosage: UNK
     Route: 045
     Dates: start: 20071221
  2. NAPROSYN [Concomitant]
  3. DIETARY SUPPLEMENT [Concomitant]
  4. ZYRTEC [Concomitant]
     Dosage: 10 MG, QD, TABS
     Dates: start: 20071130
  5. ALBUTEROL SULFATE [Concomitant]
     Dosage: 180 MCG/ 2 PUFFS Q 4-6 HOURS
     Route: 045
     Dates: start: 20071130
  6. SULFAMETHOXAZOLE AND TRIMETHOPRIM DOUBLE STRENGTH [Concomitant]
     Dosage: 800-160 MG TABS/ 1 TAB BID
     Dates: start: 20071130
  7. GABAPENTIN [Concomitant]
     Dosage: 300 MG / 2 QD
     Dates: start: 20071217
  8. NASONEX [Concomitant]
     Dosage: 50 MCG/24HR, ACT SUSP, 1-2 PUFFS,
     Route: 045
     Dates: start: 20071130
  9. ADVAIR DISKUS 100/50 [Concomitant]
     Dosage: 100-50 MCG, 1 PUFF, BID
     Route: 045
     Dates: start: 20071130
  10. ZOLOFT [Concomitant]
     Dosage: 100 MG, QD
     Dates: start: 20071130
  11. SEROQUEL [Concomitant]
     Dosage: 50 MG TAB/ QHS
     Dates: start: 20071130
  12. YASMIN [Suspect]
     Indication: ACNE
  13. YASMIN [Suspect]
     Indication: PREMENSTRUAL SYNDROME
  14. YASMIN [Suspect]
     Indication: CONTRACEPTION
     Dosage: UNK
     Dates: start: 20070801, end: 20071222

REACTIONS (12)
  - CHEST PAIN [None]
  - PLEURAL EFFUSION [None]
  - PULMONARY INFARCTION [None]
  - DYSPNOEA [None]
  - FIBRIN D DIMER INCREASED [None]
  - CHOLECYSTITIS [None]
  - BILIARY COLIC [None]
  - PULMONARY EMBOLISM [None]
  - RASH [None]
  - NAUSEA [None]
  - ABDOMINAL PAIN [None]
  - CHOLELITHIASIS [None]
